FAERS Safety Report 8469427-5 (Version None)
Quarter: 2012Q2

REPORT INFORMATION
  Report Type: 
  Country: None (occurrence: None)
  Receive Date: 20120626
  Receipt Date: 20120618
  Transmission Date: 20120825
  Serious: Yes (Death)
  Sender: FDA-Public Use
  Company Number: DE-BRISTOL-MYERS SQUIBB COMPANY-16693525

PATIENT

DRUGS (1)
  1. YERVOY [Suspect]
     Dosage: MAR+APR12:3PACK50MG/10ML;8869134;1L63916;EXP:MAY2014+200MG/40ML;8869140;1M47424;EXP:APR2014
     Dates: start: 20120101, end: 20120101

REACTIONS (1)
  - SUDDEN DEATH [None]
